FAERS Safety Report 8009354-0 (Version None)
Quarter: 2011Q4

REPORT INFORMATION
  Report Type: 
  Country: None (occurrence: None)
  Receive Date: 20111221
  Receipt Date: 20111205
  Transmission Date: 20120403
  Serious: Yes (Death, Hospitalization, Other)
  Sender: FDA-Public Use
  Company Number: MPS1-1000581

PATIENT
  Age: 6 Year
  Sex: Female
  Weight: 21 kg

DRUGS (1)
  1. ALDURAZYME [Suspect]
     Indication: MUCOPOLYSACCHARIDOSIS I
     Dosage: 4 VIALS, QW, INTRAVENOUS
     Route: 042
     Dates: start: 20100201

REACTIONS (6)
  - LARYNGOSPASM [None]
  - CARDIO-RESPIRATORY ARREST [None]
  - HYPOTENSION [None]
  - ACUTE RESPIRATORY FAILURE [None]
  - CYANOSIS [None]
  - PNEUMONIA ASPIRATION [None]
